FAERS Safety Report 7833319-2 (Version None)
Quarter: 2011Q4

REPORT INFORMATION
  Report Type: 
  Country: None (occurrence: None)
  Receive Date: 20111024
  Receipt Date: 20111014
  Transmission Date: 20120403
  Serious: Yes (Other)
  Sender: FDA-Public Use
  Company Number: US-SANOFI-AVENTIS-2011SA062811

PATIENT
  Age: 75 Year
  Sex: Male

DRUGS (8)
  1. SIMVASTATIN [Concomitant]
  2. NEURONTIN [Concomitant]
  3. LISINOPRIL [Concomitant]
  4. GLUCOPHAGE [Concomitant]
  5. LANTUS [Suspect]
     Dosage: DOSE:4 UNIT(S)
     Route: 058
     Dates: start: 20110801, end: 20111001
  6. LANTUS [Suspect]
     Dosage: DOSE:8 UNIT(S)
     Route: 058
     Dates: start: 20111013
  7. GLUCOTROL [Concomitant]
  8. JANUVIA [Concomitant]

REACTIONS (5)
  - VISUAL IMPAIRMENT [None]
  - EYE HAEMORRHAGE [None]
  - BLOOD GLUCOSE INCREASED [None]
  - INJECTION SITE HAEMATOMA [None]
  - BLOOD GLUCOSE DECREASED [None]
